FAERS Safety Report 25654360 (Version 2)
Quarter: 2025Q3

REPORT INFORMATION
  Report Type: Spontaneous
  Country: US (occurrence: US)
  Receive Date: 20250807
  Receipt Date: 20250808
  Transmission Date: 20251021
  Serious: No
  Sender: JOHNSON AND JOHNSON
  Company Number: US-JNJFOC-20250805035

PATIENT
  Age: 20 Year
  Sex: Female

DRUGS (4)
  1. SPRAVATO [Suspect]
     Active Substance: ESKETAMINE
     Indication: Major depression
     Route: 045
     Dates: start: 20250506
  2. SPRAVATO [Suspect]
     Active Substance: ESKETAMINE
     Indication: Anxiety
     Route: 045
     Dates: start: 20250805
  3. HYDROXYZINE [Concomitant]
     Active Substance: HYDROXYZINE HYDROCHLORIDE
     Indication: Product used for unknown indication
  4. FLUVOXAMINE [Concomitant]
     Active Substance: FLUVOXAMINE
     Indication: Product used for unknown indication

REACTIONS (3)
  - Chest pain [Unknown]
  - Blood pressure increased [Unknown]
  - Lethargy [Unknown]

NARRATIVE: CASE EVENT DATE: 20250805
